FAERS Safety Report 15297416 (Version 1)
Quarter: 2018Q3

REPORT INFORMATION
  Report Type: Report from Study
  Country: US (occurrence: US)
  Receive Date: 20180820
  Receipt Date: 20180820
  Transmission Date: 20181010
  Serious: Yes (Hospitalization)
  Sender: FDA-Public Use
  Company Number: US-PURDUE PHARMA-USA-2018-0144492

PATIENT
  Sex: Female

DRUGS (1)
  1. OXYCODONE HYDROCHLORIDE. [Suspect]
     Active Substance: OXYCODONE HYDROCHLORIDE
     Indication: PAIN
     Dosage: 60 MG, Q8H
     Route: 048

REACTIONS (3)
  - Vomiting [Unknown]
  - Off label use [Not Recovered/Not Resolved]
  - Pancreatitis [Not Recovered/Not Resolved]

NARRATIVE: CASE EVENT DATE: 20180813
